FAERS Safety Report 8258904-8 (Version None)
Quarter: 2012Q2

REPORT INFORMATION
  Report Type: 
  Country: None (occurrence: None)
  Receive Date: 20120404
  Receipt Date: 20120327
  Transmission Date: 20120825
  Serious: Yes (Hospitalization, Other)
  Sender: FDA-Public Use
  Company Number: US-BAYER-2012-031139

PATIENT
  Age: 78 Year
  Sex: Female
  Weight: 88 kg

DRUGS (8)
  1. METFORMIN HCL [Concomitant]
  2. GARLIC [Concomitant]
  3. LISINOPRIL [Concomitant]
  4. CARVEDILOL [Concomitant]
  5. FISH OIL [Concomitant]
  6. COQ10 [Concomitant]
  7. NAPROXEN (ALEVE) [Suspect]
     Indication: BACK PAIN
     Dosage: 1 DF, PRN
     Route: 048
  8. METAMUCIL-2 [Concomitant]

REACTIONS (8)
  - VOMITING PROJECTILE [None]
  - ORAL DISCOMFORT [None]
  - HAEMATEMESIS [None]
  - DIZZINESS [None]
  - NO ADVERSE EVENT [None]
  - OESOPHAGEAL HAEMORRHAGE [None]
  - FEELING HOT [None]
  - ASTHENIA [None]
